FAERS Safety Report 9014668 (Version 1)
Quarter: 2013Q1

REPORT INFORMATION
  Report Type: Report from Study
  Country: FR (occurrence: FR)
  Receive Date: 20130115
  Receipt Date: 20130115
  Transmission Date: 20140127
  Serious: Yes (Hospitalization)
  Sender: FDA-Public Use
  Company Number: FR-PFIZER INC-2013012043

PATIENT
  Age: 68 Year
  Sex: Female
  Weight: 57 kg

DRUGS (7)
  1. FLUOROURACILE PFIZER [Suspect]
     Indication: BREAST CANCER
     Dosage: 800 MG, 121 DAYS
     Route: 042
     Dates: start: 20120516
  2. FARMORUBICIN [Suspect]
     Indication: BREAST CANCER
     Dosage: 162 MG,121 DAYS
     Route: 042
     Dates: start: 20120516
  3. CYCLOPHOSPHAMIDE [Suspect]
     Indication: BREAST CANCER
     Dosage: 820 MG, 121 DAYS
     Dates: start: 20120516
  4. CHONDROSULF [Concomitant]
     Indication: BREAST CANCER
  5. IMOVANE [Concomitant]
  6. AVLOCARDYL [Concomitant]
  7. CALCIUM WITH VITAMIN D [Concomitant]

REACTIONS (1)
  - Febrile bone marrow aplasia [Recovered/Resolved]
